FAERS Safety Report 6042841-3 (Version None)
Quarter: 2009Q1

REPORT INFORMATION
  Report Type: 
  Country: None (occurrence: None)
  Receive Date: 20090119
  Receipt Date: 20090113
  Transmission Date: 20090719
  Serious: No
  Sender: FDA-Public Use
  Company Number: CA-ALLERGAN-0807465US

PATIENT
  Sex: Female

DRUGS (3)
  1. LUMIGAN [Suspect]
     Indication: DRUG USE FOR UNKNOWN INDICATION
     Dosage: UNK, UNKNOWN
     Route: 047
     Dates: start: 20080611, end: 20080616
  2. CORTISONE ACETATE TAB [Concomitant]
     Indication: ECZEMA
  3. ANTIBIOTICS (NOS) [Concomitant]

REACTIONS (3)
  - HYPERSENSITIVITY [None]
  - RASH [None]
  - SCRATCH [None]
